FAERS Safety Report 20714233 (Version 1)
Quarter: 2022Q2

REPORT INFORMATION
  Report Type: Spontaneous
  Country: CH (occurrence: CH)
  Receive Date: 20220415
  Receipt Date: 20220415
  Transmission Date: 20220721
  Serious: Yes (Other)
  Sender: FDA-Public Use
  Company Number: CH-VERTEX PHARMACEUTICALS-2022-005614

PATIENT
  Age: 29 Year
  Sex: Female

DRUGS (3)
  1. TRIKAFTA [Suspect]
     Active Substance: ELEXACAFTOR\IVACAFTOR\TEZACAFTOR
     Indication: Cystic fibrosis
     Route: 048
  2. CELESTONE [Concomitant]
     Active Substance: BETAMETHASONE
     Route: 064
  3. ATOSIBAN [Concomitant]
     Active Substance: ATOSIBAN
     Route: 064

REACTIONS (3)
  - Polyhydramnios [Recovered/Resolved]
  - Premature baby [Recovered/Resolved]
  - Exposure during pregnancy [Unknown]

NARRATIVE: CASE EVENT DATE: 20201201
